FAERS Safety Report 26190899 (Version 1)
Quarter: 2025Q4

REPORT INFORMATION
  Report Type: Spontaneous
  Country: US (occurrence: US)
  Receive Date: 20251223
  Receipt Date: 20251223
  Transmission Date: 20260118
  Serious: Yes (Other)
  Sender: ALEMBIC
  Company Number: US-ALEMBIC PHARMACUETICALS LIMITED-2025SCAL001827

PATIENT

DRUGS (1)
  1. METHOTREXATE [Suspect]
     Active Substance: METHOTREXATE
     Indication: B-cell type acute leukaemia
     Dosage: 2 MILLIGRAM
     Route: 065

REACTIONS (8)
  - Eosinophilic pneumonia [Recovering/Resolving]
  - Respiratory symptom [Recovering/Resolving]
  - Pyrexia [Recovering/Resolving]
  - Lung opacity [Recovering/Resolving]
  - Pulmonary septal thickening [Recovering/Resolving]
  - Eosinophilia [Recovering/Resolving]
  - Pulmonary toxicity [Recovering/Resolving]
  - Incorrect dose administered [Unknown]
